FAERS Safety Report 23346837 (Version 1)
Quarter: 2023Q4

REPORT INFORMATION
  Report Type: Spontaneous
  Country: DE (occurrence: DE)
  Receive Date: 20231228
  Receipt Date: 20231228
  Transmission Date: 20240109
  Serious: Yes (Death, Congenital Anomaly)
  Sender: FDA-Public Use
  Company Number: DE-EMBRYOTOX-202211078

PATIENT

DRUGS (3)
  1. MIRTAZAPINE [Suspect]
     Active Substance: MIRTAZAPINE
     Indication: Anxiety disorder
     Dosage: 15 [MG/D ]/ REDUCED AT GW 1.2 FROM 15 MG TO 7.5 MG
     Route: 064
  2. DOXYLAMINE SUCCINATE\PYRIDOXINE HYDROCHLORIDE [Suspect]
     Active Substance: DOXYLAMINE SUCCINATE\PYRIDOXINE HYDROCHLORIDE
     Indication: Morning sickness
     Dosage: 20 [MG/D ] / 20 [MG/D ] 2 SEPARATED DOSES
     Route: 064
  3. FOLIC ACID [Concomitant]
     Active Substance: FOLIC ACID
     Indication: Prophylaxis of neural tube defect
     Dosage: 10. - 19. GESTATIONAL WEEK
     Route: 064

REACTIONS (2)
  - Dandy-Walker syndrome [Fatal]
  - Foetal exposure during pregnancy [Unknown]
